FAERS Safety Report 6654694-0 (Version None)
Quarter: 2010Q1

REPORT INFORMATION
  Report Type: 
  Country: None (occurrence: None)
  Receive Date: 20100326
  Receipt Date: 20100315
  Transmission Date: 20100710
  Serious: Yes (Life-Threatening)
  Sender: FDA-Public Use
  Company Number: DE-GENENTECH-295914

PATIENT
  Sex: Male
  Weight: 90 kg

DRUGS (12)
  1. MABTHERA [Suspect]
     Indication: CHRONIC LYMPHOCYTIC LEUKAEMIA
     Dosage: UNK
     Route: 042
     Dates: start: 20090701, end: 20091001
  2. ALEMTUZUMAB [Suspect]
     Indication: CHRONIC LYMPHOCYTIC LEUKAEMIA
     Dosage: UNK
     Route: 042
     Dates: start: 20060101, end: 20060301
  3. ALEMTUZUMAB [Suspect]
     Dosage: UNK
     Route: 042
     Dates: start: 20061101, end: 20061201
  4. ALEMTUZUMAB [Suspect]
     Dosage: UNK
     Route: 042
     Dates: start: 20070301
  5. ALEMTUZUMAB [Suspect]
     Dosage: UNK
     Route: 042
     Dates: start: 20080201, end: 20080301
  6. ALEMTUZUMAB [Suspect]
     Dosage: UNK
     Route: 042
     Dates: start: 20080701, end: 20080901
  7. FLUDARABINE PHOSPHATE [Concomitant]
     Indication: CHRONIC LYMPHOCYTIC LEUKAEMIA
     Dosage: UNK
     Route: 065
     Dates: start: 20080701, end: 20080901
  8. FLUDARABINE PHOSPHATE [Concomitant]
     Dosage: UNK
     Route: 065
     Dates: start: 20030201, end: 20030801
  9. FLUDARABINE PHOSPHATE [Concomitant]
     Dosage: UNK
     Dates: start: 20090701, end: 20091001
  10. CYCLOPHOSPHAMIDE [Concomitant]
     Indication: CHRONIC LYMPHOCYTIC LEUKAEMIA
     Dosage: UNK
     Route: 042
     Dates: start: 20090701, end: 20091001
  11. CYCLOPHOSPHAMIDE [Concomitant]
     Dosage: UNK
     Route: 042
     Dates: start: 20041101, end: 20050401
  12. CYCLOPHOSPHAMIDE [Concomitant]
     Dosage: UNK
     Dates: start: 20090701, end: 20091001

REACTIONS (1)
  - PROGRESSIVE MULTIFOCAL LEUKOENCEPHALOPATHY [None]
